FAERS Safety Report 17080101 (Version 3)
Quarter: 2019Q4

REPORT INFORMATION
  Report Type: Spontaneous
  Country: US (occurrence: US)
  Receive Date: 20191127
  Receipt Date: 20191202
  Transmission Date: 20200122
  Serious: No
  Sender: FDA-Public Use
  Company Number: US-BIOGEN-2019BI00800868

PATIENT
  Age: 53 Year
  Sex: Male

DRUGS (2)
  1. TECFIDERA [Suspect]
     Active Substance: DIMETHYL FUMARATE
     Indication: MULTIPLE SCLEROSIS
     Route: 048
     Dates: start: 20190927
  2. TECFIDERA [Suspect]
     Active Substance: DIMETHYL FUMARATE
     Route: 065
     Dates: start: 20191015, end: 20191120

REACTIONS (6)
  - Fatigue [Not Recovered/Not Resolved]
  - Musculoskeletal disorder [Not Recovered/Not Resolved]
  - Feeling jittery [Recovered/Resolved]
  - Rash pruritic [Not Recovered/Not Resolved]
  - Tongue discolouration [Not Recovered/Not Resolved]
  - Pharyngeal disorder [Unknown]

NARRATIVE: CASE EVENT DATE: 20191107
